FAERS Safety Report 25601632 (Version 1)
Quarter: 2025Q3

REPORT INFORMATION
  Report Type: Other
  Country: CA (occurrence: CA)
  Receive Date: 20250724
  Receipt Date: 20250724
  Transmission Date: 20251021
  Serious: Yes (Other)
  Sender: APOTEX
  Company Number: CA-PGRTD-E2B_07692232

PATIENT
  Age: 79 Year
  Sex: Female

DRUGS (3)
  1. BRIMONIDINE TARTRATE\TIMOLOL MALEATE [Suspect]
     Active Substance: BRIMONIDINE TARTRATE\TIMOLOL MALEATE
     Indication: Glaucoma
     Route: 047
  2. DEXAMETHASONE [Suspect]
     Active Substance: DEXAMETHASONE
     Indication: Noninfective chorioretinitis
     Route: 047
  3. DEXAMETHASONE [Suspect]
     Active Substance: DEXAMETHASONE
     Route: 047

REACTIONS (9)
  - Eye infection [Unknown]
  - Eye inflammation [Unknown]
  - Visual impairment [Unknown]
  - Retinitis [Unknown]
  - Eye pain [Unknown]
  - Vasculitis [Unknown]
  - Uveitis [Unknown]
  - Swelling face [Unknown]
  - Drug hypersensitivity [Unknown]
